FAERS Safety Report 5165244-2 (Version None)
Quarter: 2006Q4

REPORT INFORMATION
  Report Type: 
  Country: None (occurrence: None)
  Receive Date: 20061124
  Receipt Date: 20061113
  Transmission Date: 20070319
  Serious: Yes (Hospitalization)
  Sender: FDA-Public Use
  Company Number: 2006140965

PATIENT
  Sex: Female

DRUGS (2)
  1. MEDROXYPROGESTERONE ACETATE [Suspect]
     Indication: RESTLESSNESS
     Dosage: ORAL
     Route: 048
     Dates: start: 19970101
  2. ESTRADERM [Suspect]
     Indication: RESTLESSNESS
     Dosage: TRANSDERMAL
     Route: 062
     Dates: start: 19970101

REACTIONS (4)
  - ECZEMA [None]
  - GENITAL DISORDER FEMALE [None]
  - GENITAL PRURITUS FEMALE [None]
  - INFLAMMATION [None]
